FAERS Safety Report 16592459 (Version 1)
Quarter: 2019Q3

REPORT INFORMATION
  Report Type: Report from Study
  Country: KR (occurrence: KR)
  Receive Date: 20190718
  Receipt Date: 20190718
  Transmission Date: 20191004
  Serious: Yes (Hospitalization)
  Sender: FDA-Public Use
  Company Number: KR-EISAI MEDICAL RESEARCH-EC-2019-059147

PATIENT
  Age: 84 Year
  Sex: Female
  Weight: 41 kg

DRUGS (8)
  1. SYNTHROID [Concomitant]
     Active Substance: LEVOTHYROXINE SODIUM
  2. AMODIPIN [Concomitant]
  3. TAMIPOOL [Concomitant]
     Active Substance: VITAMINS
  4. SICOBIN [Concomitant]
  5. LENVIMA [Suspect]
     Active Substance: LENVATINIB
     Route: 048
     Dates: start: 20190502, end: 20190707
  6. ALFABONE SC [Concomitant]
  7. LENVIMA [Suspect]
     Active Substance: LENVATINIB
     Indication: PRODUCT USED FOR UNKNOWN INDICATION
     Route: 048
     Dates: start: 20190311, end: 20190408
  8. LENVIMA [Suspect]
     Active Substance: LENVATINIB
     Route: 048
     Dates: start: 20190409, end: 20190415

REACTIONS (1)
  - Lymph node abscess [Recovered/Resolved with Sequelae]

NARRATIVE: CASE EVENT DATE: 20190708
